FAERS Safety Report 4828402-X (Version None)
Quarter: 2005Q4

REPORT INFORMATION
  Report Type: 
  Country: None (occurrence: None)
  Receive Date: 20051115
  Receipt Date: 20050802
  Transmission Date: 20060501
  Serious: Yes (Death, Hospitalization, Other)
  Sender: FDA-Public Use
  Company Number: US-MERCK-0508USA01105

PATIENT
  Age: 66 Year
  Sex: Female
  Weight: 102 kg

DRUGS (6)
  1. VIOXX [Suspect]
     Indication: ARTHRITIS
     Route: 048
     Dates: start: 20000101, end: 20001016
  2. VIOXX [Suspect]
     Route: 048
     Dates: start: 20000101, end: 20001016
  3. VIOXX [Suspect]
     Route: 048
     Dates: start: 20000823, end: 20000917
  4. NOLVADEX [Concomitant]
     Indication: BREAST CANCER
     Route: 048
     Dates: start: 19950101, end: 20000101
  5. DARVOCET-N 100 [Concomitant]
     Indication: PAIN
     Route: 048
  6. LOPRESSOR [Concomitant]
     Indication: HYPERTENSION
     Route: 048

REACTIONS (39)
  - ACUTE PRERENAL FAILURE [None]
  - ANAEMIA [None]
  - BLOOD PARATHYROID HORMONE INCREASED [None]
  - CARDIAC FAILURE CONGESTIVE [None]
  - CEREBRAL HAEMORRHAGE [None]
  - CEREBROVASCULAR ACCIDENT [None]
  - CEREBROVASCULAR DISORDER [None]
  - CHOLECYSTITIS [None]
  - COOMBS TEST POSITIVE [None]
  - DEHYDRATION [None]
  - DIALYSIS [None]
  - DRUG INTERACTION [None]
  - DUODENAL ULCER [None]
  - ELECTROLYTE IMBALANCE [None]
  - FUNGAL SEPSIS [None]
  - GALLBLADDER DISORDER [None]
  - GENERALISED OEDEMA [None]
  - HEPATOMEGALY [None]
  - HYPERTENSION [None]
  - HYPOTHYROIDISM [None]
  - LUNG INFILTRATION [None]
  - METABOLIC ENCEPHALOPATHY [None]
  - MULTI-ORGAN FAILURE [None]
  - NERVOUS SYSTEM DISORDER [None]
  - OSTEOARTHRITIS [None]
  - PLEURAL EFFUSION [None]
  - PULMONARY MASS [None]
  - PYELONEPHRITIS [None]
  - PYREXIA [None]
  - RENAL FAILURE [None]
  - RENAL FAILURE CHRONIC [None]
  - RHEUMATOID ARTHRITIS [None]
  - RHEUMATOID FACTOR POSITIVE [None]
  - SENSATION OF HEAVINESS [None]
  - SEPSIS [None]
  - TREMOR [None]
  - URINARY TRACT INFECTION BACTERIAL [None]
  - URINARY TRACT INFECTION FUNGAL [None]
  - UTERINE ENLARGEMENT [None]
